FAERS Safety Report 5497135-1 (Version None)
Quarter: 2007Q4

REPORT INFORMATION
  Report Type: 
  Country: None (occurrence: None)
  Receive Date: 20071025
  Receipt Date: 20071015
  Transmission Date: 20080405
  Serious: Yes (Life-Threatening, Hospitalization)
  Sender: FDA-Public Use
  Company Number: PL-AMGEN-UK241464

PATIENT
  Sex: Male

DRUGS (7)
  1. PANITUMUMAB [Suspect]
     Indication: COLORECTAL CANCER
     Dates: start: 20070620
  2. AUGMENTIN '125' [Concomitant]
     Route: 042
     Dates: start: 20070830, end: 20070905
  3. DIFLUCAN [Concomitant]
     Route: 042
     Dates: start: 20070830, end: 20070907
  4. BIAXIN [Concomitant]
     Route: 042
     Dates: start: 20070830, end: 20070905
  5. IRINOTECAN HCL [Concomitant]
     Route: 041
     Dates: start: 20070620
  6. LEUCOVORIN [Concomitant]
     Route: 041
     Dates: start: 20070620
  7. FLUOROURACIL [Concomitant]
     Route: 041
     Dates: start: 20070620

REACTIONS (1)
  - PULMONARY EMBOLISM [None]
